FAERS Safety Report 11840098 (Version 1)
Quarter: 2015Q4

REPORT INFORMATION
  Report Type: Spontaneous
  Country: FR (occurrence: FR)
  Receive Date: 20151216
  Receipt Date: 20151216
  Transmission Date: 20160305
  Serious: Yes (Death, Other)
  Sender: FDA-Public Use
  Company Number: FR-BAYER-2015-291790

PATIENT
  Age: 64 Year
  Sex: Male

DRUGS (7)
  1. XOFIGO [Suspect]
     Active Substance: RADIUM RA-223 DICHLORIDE
     Indication: PROSTATE CANCER
     Dosage: 3.64 MBQ, ONCE
     Route: 042
     Dates: start: 20150127, end: 20150127
  2. ESOMEPRAZOLE [Concomitant]
     Active Substance: ESOMEPRAZOLE
     Dosage: 20 MG, QD
     Route: 048
  3. ACTISKENAN [Concomitant]
     Active Substance: MORPHINE SULFATE
     Indication: PAIN
     Dosage: 10 MG, QD
     Route: 048
  4. SOLUPRED [PREDNISOLONE] [Concomitant]
     Active Substance: PREDNISOLONE
     Indication: VOMITING
     Dosage: 40 MG, BID
     Route: 048
  5. PURSENNIDE [Concomitant]
     Active Substance: SENNOSIDES A AND B
     Indication: CONSTIPATION
     Dosage: 20 MG, QD
  6. XOFIGO [Suspect]
     Active Substance: RADIUM RA-223 DICHLORIDE
     Indication: PROSTATE CANCER
     Dosage: 3.47 MBQ, ONCE
     Route: 042
     Dates: start: 20141230, end: 20141230
  7. PARACETAMOL [Concomitant]
     Active Substance: ACETAMINOPHEN
     Indication: PAIN
     Dosage: 1 G, QID
     Route: 048

REACTIONS (3)
  - Haemoglobin decreased [Fatal]
  - Anaemia [None]
  - Cerebral venous thrombosis [Fatal]

NARRATIVE: CASE EVENT DATE: 20150313
